FAERS Safety Report 21324234 (Version 1)
Quarter: 2022Q3

REPORT INFORMATION
  Report Type: Report from Study
  Country: LT (occurrence: LT)
  Receive Date: 20220912
  Receipt Date: 20220912
  Transmission Date: 20221027
  Serious: Yes (Hospitalization, Other)
  Sender: FDA-Public Use
  Company Number: LT-CELGENE-LTU-20200703748

PATIENT
  Age: 68 Year
  Sex: Male

DRUGS (5)
  1. ENASIDENIB [Suspect]
     Active Substance: ENASIDENIB
     Indication: Acute myeloid leukaemia
     Route: 048
     Dates: start: 20200623, end: 20200713
  2. Trimetoprim/Sulfamethoxazole [Concomitant]
     Indication: Product used for unknown indication
     Route: 065
     Dates: start: 20200228
  3. OMEPRAZOLE [Concomitant]
     Active Substance: OMEPRAZOLE
     Indication: Product used for unknown indication
     Route: 065
     Dates: start: 20200423
  4. VALACYCLOVIR [Concomitant]
     Active Substance: VALACYCLOVIR HYDROCHLORIDE
     Indication: Product used for unknown indication
     Route: 065
     Dates: start: 20200228
  5. Mycofenolate mofetil [Concomitant]
     Indication: Product used for unknown indication
     Route: 065
     Dates: start: 20200525

REACTIONS (1)
  - Pneumonia fungal [Recovered/Resolved]

NARRATIVE: CASE EVENT DATE: 20200625
